FAERS Safety Report 5739051-3 (Version None)
Quarter: 2008Q2

REPORT INFORMATION
  Report Type: 
  Country: None (occurrence: None)
  Receive Date: 20080515
  Receipt Date: 20080515
  Transmission Date: 20081010
  Serious: Yes (Hospitalization)
  Sender: FDA-Public Use
  Company Number: A0728065A

PATIENT
  Age: 73 Year
  Sex: Female

DRUGS (12)
  1. ALLI [Suspect]
     Indication: WEIGHT LOSS DIET
     Route: 048
     Dates: start: 20080201, end: 20080418
  2. PLAVIX [Suspect]
     Indication: DRUG USE FOR UNKNOWN INDICATION
     Route: 065
  3. SPIRONOLACTONE/HYDROCHLOROTHIAZIDE [Concomitant]
  4. ZETIA [Concomitant]
  5. ATACAND [Concomitant]
  6. ISOSORBIDE MONONITRATE [Concomitant]
  7. LYRICA [Concomitant]
  8. FUROSEMIDE [Concomitant]
  9. PRAVASTATIN [Concomitant]
  10. ADVAIR DISKUS 100/50 [Concomitant]
     Dosage: 1PUFF THREE TIMES PER DAY
  11. NITROGLYCERIN [Concomitant]
  12. PROPOXYPHENE NAPSYLATE AND ACETAMINOPHEN [Concomitant]
     Dosage: 1TAB PER DAY

REACTIONS (2)
  - AMNESIA [None]
  - CORONARY ARTERY OCCLUSION [None]
